FAERS Safety Report 13567570 (Version 1)
Quarter: 2017Q2

REPORT INFORMATION
  Report Type: Report from Study
  Country: None (occurrence: BR)
  Receive Date: 20170522
  Receipt Date: 20170522
  Transmission Date: 20170830
  Serious: Yes (Other)
  Sender: FDA-Public Use
  Company Number: BR-ABBVIE-17K-020-1981408-00

PATIENT
  Age: 63 Year
  Sex: Male
  Weight: 87 kg

DRUGS (3)
  1. HUMIRA [Suspect]
     Active Substance: ADALIMUMAB
     Indication: PSORIASIS
     Route: 058
     Dates: start: 20110401, end: 201703
  2. SELOZOK [Concomitant]
     Active Substance: METOPROLOL SUCCINATE
     Indication: HYPERTENSION
     Route: 048
     Dates: start: 201704
  3. MODURETIC 5-50 [Concomitant]
     Active Substance: AMILORIDE HYDROCHLORIDE\HYDROCHLOROTHIAZIDE
     Indication: HYPERTENSION
     Route: 048
     Dates: start: 20170426

REACTIONS (10)
  - Ocular hyperaemia [Recovering/Resolving]
  - Respiratory tract haemorrhage [Recovering/Resolving]
  - Cataract [Not Recovered/Not Resolved]
  - Rhinitis [Recovering/Resolving]
  - Vocal cord thickening [Not Recovered/Not Resolved]
  - Diabetes mellitus [Recovered/Resolved]
  - Dysphonia [Recovering/Resolving]
  - Influenza [Recovering/Resolving]
  - Increased bronchial secretion [Recovering/Resolving]
  - Cough [Recovering/Resolving]

NARRATIVE: CASE EVENT DATE: 2014
